FAERS Safety Report 8231838-0 (Version None)
Quarter: 2012Q1

REPORT INFORMATION
  Report Type: 
  Country: None (occurrence: None)
  Receive Date: 20120323
  Receipt Date: 20120319
  Transmission Date: 20120608
  Serious: No
  Sender: FDA-Public Use
  Company Number: US-PFIZER INC-2012072216

PATIENT
  Sex: Female
  Weight: 58.503 kg

DRUGS (5)
  1. DIOVAN HCT [Concomitant]
     Indication: HYPERTENSION
     Dosage: UNK, 2X/DAY
  2. SYNTHROID [Concomitant]
     Indication: HYPERTHYROIDISM
     Dosage: 100 UG, UNK
  3. AMLODIPINE [Suspect]
     Indication: HYPERTENSION
     Dosage: 2.5 MG, 1X/DAY
     Route: 048
     Dates: start: 20120101, end: 20120101
  4. NEXIUM [Concomitant]
     Dosage: 40 MG, 1X/DAY
  5. NIFEDIPINE [Suspect]
     Indication: HYPERTENSION
     Dosage: 30 MG, 1X/DAY
     Route: 048
     Dates: start: 20120101, end: 20120101

REACTIONS (1)
  - BLOOD CHOLESTEROL INCREASED [None]
